FAERS Safety Report 24205908 (Version 1)
Quarter: 2024Q3

REPORT INFORMATION
  Report Type: Spontaneous
  Country: US (occurrence: US)
  Receive Date: 20240813
  Receipt Date: 20240813
  Transmission Date: 20241017
  Serious: No
  Sender: SANDOZ
  Company Number: US-SANDOZ-SDZ2024US071961

PATIENT

DRUGS (1)
  1. METHOTREXATE SODIUM [Suspect]
     Active Substance: METHOTREXATE SODIUM
     Indication: Eczema
     Dosage: UNK
     Route: 065

REACTIONS (3)
  - Non-alcoholic fatty liver [Unknown]
  - Alanine aminotransferase increased [Recovered/Resolved]
  - Hepatic enzyme increased [Recovered/Resolved]
